FAERS Safety Report 7096351-5 (Version None)
Quarter: 2010Q4

REPORT INFORMATION
  Report Type: 
  Country: None (occurrence: None)
  Receive Date: 20101111
  Receipt Date: 20101109
  Transmission Date: 20110411
  Serious: Yes (Life-Threatening, Hospitalization)
  Sender: FDA-Public Use
  Company Number: JP-BRISTOL-MYERS SQUIBB COMPANY-15190150

PATIENT
  Age: 65 Year
  Weight: 76 kg

DRUGS (16)
  1. CISPLATIN [Suspect]
     Indication: CERVIX CARCINOMA RECURRENT
     Route: 042
     Dates: start: 20100630
  2. S-1 [Suspect]
     Indication: CERVIX CARCINOMA
     Dosage: 2 TIMES; ONGOING.
     Route: 048
     Dates: start: 20100630, end: 20100712
  3. NIFEDIPINE [Concomitant]
     Indication: HYPERTENSION
     Dosage: 10 MG ON 15JUL10
     Route: 048
     Dates: end: 20100713
  4. OLMESARTAN MEDOXOMIL [Concomitant]
     Indication: HYPERTENSION
     Route: 048
     Dates: end: 20100713
  5. TRICHLORMETHIAZIDE [Concomitant]
     Indication: HYPERTENSION
     Route: 048
  6. PIOGLITAZONE HCL [Concomitant]
     Indication: DIABETES MELLITUS
     Route: 048
  7. GLICLAZIDE [Concomitant]
     Indication: DIABETES MELLITUS
     Route: 048
  8. METFORMIN HCL [Concomitant]
     Indication: DIABETES MELLITUS
     Route: 048
  9. LOPERAMIDE HCL [Concomitant]
     Indication: DIARRHOEA
     Route: 048
  10. APREPITANT [Concomitant]
     Indication: VOMITING
     Route: 048
     Dates: start: 20100703, end: 20100703
  11. METOCLOPRAMIDE [Concomitant]
     Indication: VOMITING
     Route: 048
     Dates: start: 20100703, end: 20100712
  12. TRIAMCINOLONE ACETONIDE [Concomitant]
     Indication: STOMATITIS
     Route: 061
     Dates: end: 20100713
  13. HACHIAZULE [Concomitant]
     Indication: STOMATITIS
     Dates: start: 20100713
  14. LACTOMIN [Concomitant]
     Indication: ENTERITIS
     Route: 048
  15. FILGRASTIM [Concomitant]
     Indication: SEPSIS
     Route: 042
     Dates: start: 20100717, end: 20100725
  16. IMMUNE GLOBULIN INTRAVENOUS (HUMAN) [Concomitant]
     Indication: SEPSIS
     Route: 042
     Dates: start: 20100717, end: 20100718

REACTIONS (4)
  - DISSEMINATED INTRAVASCULAR COAGULATION [None]
  - NEUTROPENIA [None]
  - RENAL FAILURE ACUTE [None]
  - SEPSIS [None]
